FAERS Safety Report 10812862 (Version 1)
Quarter: 2015Q1

REPORT INFORMATION
  Report Type: Spontaneous
  Country: GB (occurrence: GB)
  Receive Date: 20150218
  Receipt Date: 20150218
  Transmission Date: 20150721
  Serious: Yes (Hospitalization)
  Sender: FDA-Public Use
  Company Number: GB-TEVA-497990ISR

PATIENT
  Age: 70 Year
  Sex: Male

DRUGS (7)
  1. NAPROXEN. [Suspect]
     Active Substance: NAPROXEN
     Indication: BACK PAIN
     Dosage: 1000 MILLIGRAM DAILY;
     Route: 048
     Dates: start: 20140709, end: 20140714
  2. ATORVASTATIN [Concomitant]
     Active Substance: ATORVASTATIN
     Indication: CARDIOVASCULAR EVENT PROPHYLAXIS
     Dosage: 40 MILLIGRAM DAILY; CURRENT
     Route: 048
  3. TAMSULOSIN [Concomitant]
     Active Substance: TAMSULOSIN
     Indication: BENIGN PROSTATIC HYPERPLASIA
     Dosage: CURRENT
     Route: 048
  4. PARACETAMOL [Concomitant]
     Active Substance: ACETAMINOPHEN
     Dosage: 4 GRAM DAILY; CURRENT
  5. HYLO-TEAR [Concomitant]
     Indication: DRY EYE
     Dosage: 1 DROP INTO BOTH EYES 4 TIMES DAILY
     Route: 050
  6. CANDESARTAN [Concomitant]
     Active Substance: CANDESARTAN
     Indication: HYPERTENSION
     Dosage: CURRENT
     Route: 048
  7. FELODIPINE. [Concomitant]
     Active Substance: FELODIPINE
     Indication: HYPERTENSION
     Dosage: 10 MILLIGRAM DAILY; CURRENT. MODIFIED RELEASE
     Route: 048

REACTIONS (6)
  - Upper gastrointestinal haemorrhage [Recovered/Resolved]
  - Vomiting [Unknown]
  - Faeces discoloured [Unknown]
  - Gastric ulcer [Recovered/Resolved]
  - Dizziness postural [Unknown]
  - Hiatus hernia [Unknown]

NARRATIVE: CASE EVENT DATE: 20140713
